FAERS Safety Report 7780477-4 (Version None)
Quarter: 2011Q3

REPORT INFORMATION
  Report Type: 
  Country: None (occurrence: None)
  Receive Date: 20110927
  Receipt Date: 20110620
  Transmission Date: 20111222
  Serious: Yes (Hospitalization, Other)
  Sender: FDA-Public Use
  Company Number: US-GLAXOSMITHKLINE-A0932053A

PATIENT
  Age: 51 Year
  Sex: Female

DRUGS (2)
  1. LAMICTAL XR [Suspect]
     Indication: CONVERSION DISORDER
     Dosage: 100MG PER DAY
     Route: 048
     Dates: start: 20110101, end: 20110603
  2. LAMOTRIGINE [Suspect]
     Indication: CONVULSION
     Dosage: 25MG TWICE PER DAY
     Route: 048
     Dates: end: 20110101

REACTIONS (2)
  - RASH [None]
  - DRUG INEFFECTIVE [None]
